FAERS Safety Report 5677578-3 (Version None)
Quarter: 2008Q1

REPORT INFORMATION
  Report Type: 
  Country: None (occurrence: None)
  Receive Date: 20080324
  Receipt Date: 20080314
  Transmission Date: 20080703
  Serious: Yes (Life-Threatening, Other)
  Sender: FDA-Public Use
  Company Number: US-PURDUE-USA_2008_0032013

PATIENT
  Age: 57 Year
  Sex: Male

DRUGS (6)
  1. OXYCONTIN [Suspect]
     Indication: PAIN
     Dosage: 10 MG, SEE TEXT
     Route: 048
     Dates: start: 20070130, end: 20070130
  2. OXYCONTIN [Suspect]
     Dosage: 40 MG, SEE TEXT
     Route: 048
     Dates: start: 20070131, end: 20070131
  3. MORPHINE [Suspect]
     Indication: DRUG USE FOR UNKNOWN INDICATION
     Dosage: UNK, SEE TEXT
     Route: 042
     Dates: start: 20070131, end: 20070131
  4. BLOOD PRESSURE PILL [Concomitant]
     Indication: HYPERTENSION
     Dosage: UNK MG, UNK
     Route: 048
  5. CHOLESTEROL [Concomitant]
     Indication: BLOOD CHOLESTEROL INCREASED
     Dosage: UNK MG, UNK
     Route: 048
  6. TOPAMAX [Concomitant]
     Indication: DRUG USE FOR UNKNOWN INDICATION
     Dosage: UNK MG, UNK
     Route: 048

REACTIONS (6)
  - AMNESIA [None]
  - CARDIAC ARREST [None]
  - CEREBRAL ISCHAEMIA [None]
  - CONFUSIONAL STATE [None]
  - HEADACHE [None]
  - OVERDOSE [None]
